FAERS Safety Report 20819706 (Version 1)
Quarter: 2022Q2

REPORT INFORMATION
  Report Type: Spontaneous
  Country: US (occurrence: US)
  Receive Date: 20220512
  Receipt Date: 20220512
  Transmission Date: 20220720
  Serious: No
  Sender: FDA-Public Use
  Company Number: US-BRISTOL-MYERS SQUIBB COMPANY-2022-010209

PATIENT
  Sex: Male

DRUGS (1)
  1. WARFARIN SODIUM [Suspect]
     Active Substance: WARFARIN SODIUM
     Indication: Ischaemic stroke
     Route: 065

REACTIONS (1)
  - Oral disorder [Unknown]

NARRATIVE: CASE EVENT DATE: 20180101
